FAERS Safety Report 5713412-0 (Version None)
Quarter: 2008Q2

REPORT INFORMATION
  Report Type: 
  Country: None (occurrence: None)
  Receive Date: 20080422
  Receipt Date: 20080410
  Transmission Date: 20081010
  Serious: Yes (Other)
  Sender: FDA-Public Use
  Company Number: JP-PFIZER INC-2008032441

PATIENT
  Age: 98 Year
  Sex: Female

DRUGS (5)
  1. SULPERAZON [Suspect]
     Route: 042
  2. LASIX [Suspect]
  3. ALDACTONE [Concomitant]
  4. HOKUNALIN [Concomitant]
     Route: 062
  5. DIGOXIN [Concomitant]

REACTIONS (2)
  - NEUTROPHIL COUNT DECREASED [None]
  - WHITE BLOOD CELL COUNT DECREASED [None]
